FAERS Safety Report 4374126-5 (Version None)
Quarter: 2004Q2

REPORT INFORMATION
  Report Type: 
  Country: None (occurrence: None)
  Receive Date: 20040607
  Receipt Date: 20040528
  Transmission Date: 20050107
  Serious: Yes (Hospitalization)
  Sender: FDA-Public Use
  Company Number: US-MERCK-0406USA00007

PATIENT
  Age: 57 Year
  Sex: Female

DRUGS (5)
  1. ZETIA [Concomitant]
     Route: 048
  2. PREDNISONE [Concomitant]
     Indication: SYSTEMIC LUPUS ERYTHEMATOSUS
     Route: 065
  3. PREDNISONE [Concomitant]
     Indication: DERMATOMYOSITIS
     Route: 065
  4. ZOCOR [Suspect]
     Indication: BLOOD CHOLESTEROL INCREASED
     Route: 048
     Dates: start: 19880101
  5. ZOCOR [Suspect]
     Route: 048
     Dates: end: 20030101

REACTIONS (5)
  - BLOOD PRESSURE INCREASED [None]
  - DERMATOMYOSITIS [None]
  - SLEEP APNOEA SYNDROME [None]
  - SLEEP PARALYSIS [None]
  - SYSTEMIC LUPUS ERYTHEMATOSUS [None]
